FAERS Safety Report 4992984-8 (Version None)
Quarter: 2006Q1

REPORT INFORMATION
  Report Type: 
  Country: None (occurrence: None)
  Receive Date: 20060313
  Receipt Date: 20060106
  Transmission Date: 20060701
  Serious: No
  Sender: FDA-Public Use
  Company Number: 2006-BP-00178BP

PATIENT
  Age: 68 Year
  Sex: Male

DRUGS (10)
  1. SPIRIVA [Suspect]
     Indication: CHRONIC OBSTRUCTIVE PULMONARY DISEASE
     Dosage: 18 MCG (18 MCG, 1 IN 1 D), IH
     Route: 055
     Dates: start: 20051205
  2. ZOCOR [Concomitant]
  3. CARDIZEM [Concomitant]
  4. VALIUM [Concomitant]
  5. LASIX [Concomitant]
  6. PRILOSEC [Concomitant]
  7. ASPIRIN [Concomitant]
  8. ROBITUSSIN [Concomitant]
  9. ALBUTEROL SULFATE AUTOHALER [Concomitant]
  10. OXYGEN (OXYGEN) [Concomitant]

REACTIONS (4)
  - BACK PAIN [None]
  - DIARRHOEA [None]
  - LIBIDO DECREASED [None]
  - PAIN [None]
